FAERS Safety Report 8727031 (Version 1)
Quarter: 2012Q4

REPORT INFORMATION
  Report Type: 
  Country: FR (occurrence: FR)
  Receive Date: 20120829
  Receipt Date: 20120829
  Transmission Date: 20130627
  Serious: Yes (Death, Life-Threatening, Hospitalization, Other)
  Sender: FDA-Public Use
  Company Number: FR-GLAXOSMITHKLINE-B0822700A

PATIENT
  Age: 84 Year
  Sex: Female

DRUGS (9)
  1. RYTHMOL [Suspect]
     Indication: HYPERTENSION
     Dosage: 150MG Per day
     Route: 048
     Dates: start: 20120712, end: 20120712
  2. ISOPTINE [Suspect]
     Indication: HYPERTENSION
     Dosage: 120MG Per day
     Route: 048
     Dates: start: 20120712, end: 20120712
  3. CORDARONE [Suspect]
     Indication: ARRHYTHMIA
     Dosage: 600MG Per day
     Route: 042
     Dates: start: 20120707, end: 20120712
  4. DIGOXINE [Suspect]
     Indication: PRODUCT USED FOR UNKNOWN INDICATION
     Route: 042
     Dates: start: 20120708, end: 20120708
  5. PLAVIX [Concomitant]
     Indication: TRANSIENT ISCHAEMIC ATTACK
     Dosage: 75MG Per day
     Route: 048
     Dates: end: 20120704
  6. ZOCOR [Concomitant]
     Indication: DYSLIPIDAEMIA
     Dosage: 20MG Per day
     Route: 048
     Dates: end: 20120701
  7. TEMESTA [Concomitant]
     Indication: DEPRESSION
     Dosage: 500MG Per day
     Route: 048
     Dates: end: 20120701
  8. ALDACTAZINE [Concomitant]
     Indication: HYPERTENSION
     Route: 048
     Dates: end: 20120701
  9. MIANSERINE [Concomitant]
     Indication: DEPRESSION
     Route: 048
     Dates: end: 20120701

REACTIONS (23)
  - Cardiac arrest [Recovered/Resolved]
  - Meningococcal infection [Unknown]
  - Septic shock [Unknown]
  - Acute respiratory distress syndrome [Unknown]
  - Acute coronary syndrome [Unknown]
  - Renal failure acute [Unknown]
  - Shock [Unknown]
  - Cardiac tamponade [Unknown]
  - Haemodynamic instability [Unknown]
  - Hepatic function abnormal [Unknown]
  - Staphylococcal sepsis [Unknown]
  - Death [Fatal]
  - Bradycardia [Recovered/Resolved]
  - Lung disorder [Unknown]
  - Electrocardiogram ST segment elevation [Unknown]
  - Arrhythmia [Unknown]
  - Somnolence [Unknown]
  - Medical device complication [Unknown]
  - General physical health deterioration [Unknown]
  - Neurological decompensation [Unknown]
  - Renal impairment [Unknown]
  - Pulmonary function test abnormal [Unknown]
  - Enterococcal sepsis [Unknown]
